FAERS Safety Report 6263420-9 (Version None)
Quarter: 2009Q3

REPORT INFORMATION
  Report Type: 
  Country: None (occurrence: None)
  Receive Date: 20090710
  Receipt Date: 20090311
  Transmission Date: 20100115
  Serious: No
  Sender: FDA-Public Use
  Company Number: A0760749A

PATIENT
  Sex: Female

DRUGS (2)
  1. FLOVENT [Suspect]
     Indication: DRUG USE FOR UNKNOWN INDICATION
     Dosage: 2PUFF TWICE PER DAY
     Route: 055
  2. COMBIVENT [Concomitant]

REACTIONS (2)
  - DRUG INEFFECTIVE [None]
  - PRODUCT QUALITY ISSUE [None]
